FAERS Safety Report 5173622-0 (Version None)
Quarter: 2006Q4

REPORT INFORMATION
  Report Type: 
  Country: None (occurrence: None)
  Receive Date: 20061206
  Receipt Date: 20061122
  Transmission Date: 20070319
  Serious: Yes (Hospitalization, Other)
  Sender: FDA-Public Use
  Company Number: 237458K06USA

PATIENT
  Age: 45 Year
  Sex: Male

DRUGS (4)
  1. REBIF [Suspect]
     Dosage: 44 MCG, 3 IN 1 WEEKS, SUBCUTANEOUS, SEE IMAGE
     Route: 058
     Dates: start: 20051117, end: 20060701
  2. REBIF [Suspect]
     Dosage: 44 MCG, 3 IN 1 WEEKS, SUBCUTANEOUS, SEE IMAGE
     Route: 058
     Dates: start: 20060701, end: 20061101
  3. REBIF [Suspect]
     Dosage: 44 MCG, 3 IN 1 WEEKS, SUBCUTANEOUS, SEE IMAGE
     Route: 058
     Dates: start: 20061101, end: 20061101
  4. BACLOFEN [Concomitant]

REACTIONS (7)
  - ASTHENIA [None]
  - BONE MARROW FAILURE [None]
  - CHILLS [None]
  - DISEASE PROGRESSION [None]
  - MULTIPLE SCLEROSIS RELAPSE [None]
  - MUSCULOSKELETAL STIFFNESS [None]
  - PERIPHERAL COLDNESS [None]
